FAERS Safety Report 12687984 (Version 2)
Quarter: 2016Q4

REPORT INFORMATION
  Report Type: Spontaneous
  Country: US (occurrence: US)
  Receive Date: 20160825
  Receipt Date: 20161028
  Transmission Date: 20170207
  Serious: Yes (Other)
  Sender: FDA-Public Use
  Company Number: US-BAYER-2016-163377

PATIENT
  Age: 29 Year
  Sex: Female
  Weight: 87.75 kg

DRUGS (4)
  1. CIPRO [Suspect]
     Active Substance: CIPROFLOXACIN HYDROCHLORIDE
     Indication: INFECTION
     Dosage: UNK
     Dates: start: 20020109, end: 20020123
  2. CIPROFLOXACIN. [Suspect]
     Active Substance: CIPROFLOXACIN
     Indication: INFECTION
     Dosage: UNK
     Dates: start: 20050921, end: 20050930
  3. CIPRO [Suspect]
     Active Substance: CIPROFLOXACIN HYDROCHLORIDE
     Indication: INFECTION
     Dosage: UNK
     Dates: start: 200209
  4. LEVOFLOXACIN. [Suspect]
     Active Substance: LEVOFLOXACIN
     Indication: INFECTION
     Dosage: UNK
     Dates: start: 20160807, end: 201608

REACTIONS (8)
  - Injury [None]
  - Skin injury [None]
  - Cardiovascular disorder [None]
  - Pain [None]
  - Neuropathy peripheral [None]
  - Musculoskeletal injury [None]
  - Neuropsychiatric syndrome [None]
  - Hypoaesthesia [None]

NARRATIVE: CASE EVENT DATE: 20020109
